FAERS Safety Report 18767957 (Version 6)
Quarter: 2022Q3

REPORT INFORMATION
  Report Type: Spontaneous
  Country: CA (occurrence: CA)
  Receive Date: 20210121
  Receipt Date: 20220824
  Transmission Date: 20221026
  Serious: Yes (Other)
  Sender: FDA-Public Use
  Company Number: CA-PFIZER INC-2021039573

PATIENT
  Age: 81 Year
  Sex: Female

DRUGS (5)
  1. RUXIENCE [Suspect]
     Active Substance: RITUXIMAB-PVVR
     Indication: Rheumatoid arthritis
     Dosage: 1000 MG, 2 WEEKS
     Route: 042
  2. RUXIENCE [Suspect]
     Active Substance: RITUXIMAB-PVVR
     Dosage: 1000 MG, 6 MONTHS (ALTERNATIVE 120 MINS INFUSION (2HRS) X 1000 MG)
     Route: 042
     Dates: start: 20210407
  3. RUXIENCE [Suspect]
     Active Substance: RITUXIMAB-PVVR
     Dosage: 1000 MG, 6 MONTHS (ALTERNATIVE 120 MINS INFUSION (2HRS) X 1000 MG)
     Route: 042
     Dates: start: 20210421
  4. RUXIENCE [Suspect]
     Active Substance: RITUXIMAB-PVVR
     Dosage: 1000 MG, 6 MONTHS
     Route: 042
     Dates: start: 20211020, end: 20211020
  5. METHOTREXATE [Concomitant]
     Active Substance: METHOTREXATE
     Dosage: 7.5 MG, WEEKLY (ONCE A WEEK)

REACTIONS (3)
  - Dementia [Unknown]
  - Off label use [Unknown]
  - Restlessness [Unknown]
